FAERS Safety Report 11922064 (Version 1)
Quarter: 2016Q1

REPORT INFORMATION
  Report Type: Spontaneous
  Country: US (occurrence: US)
  Receive Date: 20160115
  Receipt Date: 20160115
  Transmission Date: 20160526
  Serious: Yes (Hospitalization, Other)
  Sender: FDA-Public Use
  Company Number: US-ASTRAZENECA-2016SE02231

PATIENT
  Age: 67 Year
  Sex: Female
  Weight: 70.3 kg

DRUGS (13)
  1. CALCIUM [Concomitant]
     Active Substance: CALCIUM
  2. VITAMIN B12 [Concomitant]
     Active Substance: CYANOCOBALAMIN
     Indication: WEIGHT
  3. CRESTOR [Suspect]
     Active Substance: ROSUVASTATIN CALCIUM
     Indication: BLOOD CHOLESTEROL INCREASED
     Route: 048
     Dates: start: 2013, end: 2015
  4. METOPROLOL TARTRATE. [Concomitant]
     Active Substance: METOPROLOL TARTRATE
     Indication: BLOOD PRESSURE ABNORMAL
     Dates: start: 201502
  5. FUROSEMIDE. [Concomitant]
     Active Substance: FUROSEMIDE
     Indication: CARDIAC FAILURE CONGESTIVE
  6. CRESTOR [Suspect]
     Active Substance: ROSUVASTATIN CALCIUM
     Indication: BLOOD CHOLESTEROL INCREASED
     Route: 048
     Dates: start: 2015
  7. FUROSEMIDE. [Concomitant]
     Active Substance: FUROSEMIDE
     Indication: ATRIAL FIBRILLATION
  8. IRON [Concomitant]
     Active Substance: IRON
     Indication: ANAEMIA
     Dates: start: 201502, end: 201512
  9. DIGOXIN. [Concomitant]
     Active Substance: DIGOXIN
  10. AMIODARONE [Concomitant]
     Active Substance: AMIODARONE
  11. BABY ASPIRIN [Concomitant]
     Active Substance: ASPIRIN
     Indication: ANTICOAGULANT THERAPY
     Dates: start: 201502
  12. FUROSEMIDE. [Concomitant]
     Active Substance: FUROSEMIDE
     Indication: DIURETIC THERAPY
  13. VITAMIN C [Concomitant]
     Active Substance: ASCORBIC ACID
     Dates: start: 201502

REACTIONS (12)
  - Cardiac failure congestive [Unknown]
  - Laryngitis [Unknown]
  - Gallbladder disorder [Unknown]
  - Seizure like phenomena [Unknown]
  - Vomiting [Unknown]
  - Anaemia [Unknown]
  - Heart rate decreased [Unknown]
  - Cholelithiasis [Unknown]
  - Cardiac disorder [Unknown]
  - Renal failure [Unknown]
  - Atrial fibrillation [Unknown]
  - Diarrhoea [Recovered/Resolved]

NARRATIVE: CASE EVENT DATE: 2013
